FAERS Safety Report 8495857-1 (Version None)
Quarter: 2012Q3

REPORT INFORMATION
  Report Type: 
  Country: None (occurrence: None)
  Receive Date: 20120709
  Receipt Date: 20120703
  Transmission Date: 20120928
  Serious: Yes (Other)
  Sender: FDA-Public Use
  Company Number: US-PFIZER INC-2012159859

PATIENT
  Sex: Female

DRUGS (4)
  1. AMBRISENTAN [Suspect]
     Dosage: 5 MG, UNK
     Route: 048
     Dates: start: 20120601
  2. REVATIO [Suspect]
     Dosage: UNK
  3. AMBRISENTAN [Suspect]
     Indication: PULMONARY HYPERTENSION
     Dosage: 5 MG, 1X/DAY
     Route: 048
     Dates: start: 20120601
  4. AMBRISENTAN [Suspect]
     Dosage: 5 MG, UNK
     Route: 048

REACTIONS (3)
  - DYSPNOEA [None]
  - DRUG ADMINISTRATION ERROR [None]
  - DIZZINESS [None]
